FAERS Safety Report 15495236 (Version 1)
Quarter: 2018Q4

REPORT INFORMATION
  Report Type: Spontaneous
  Country: US (occurrence: US)
  Receive Date: 20181012
  Receipt Date: 20181012
  Transmission Date: 20190205
  Serious: No
  Sender: FDA-Public Use
  Company Number: None

PATIENT
  Age: 45 Year
  Sex: Female
  Weight: 87.75 kg

DRUGS (1)
  1. LISINIPRIL [Suspect]
     Active Substance: LISINOPRIL
     Indication: HYPERTENSION
     Dosage: ?          QUANTITY:1 TABLET(S);?
     Route: 048
     Dates: start: 20180915, end: 20181006

REACTIONS (4)
  - Eye swelling [None]
  - Lip swelling [None]
  - Lip pruritus [None]
  - Eye pruritus [None]

NARRATIVE: CASE EVENT DATE: 20180919
